FAERS Safety Report 4560041-0 (Version None)
Quarter: 2005Q1

REPORT INFORMATION
  Report Type: 
  Country: None (occurrence: None)
  Receive Date: 20050125
  Receipt Date: 20050113
  Transmission Date: 20050727
  Serious: Yes (Hospitalization)
  Sender: FDA-Public Use
  Company Number: US-JNJFOC-20050103621

PATIENT
  Sex: Female

DRUGS (14)
  1. INFLIXIMAB [Suspect]
     Indication: RHEUMATOID ARTHRITIS
     Route: 042
  2. ACTONEL [Concomitant]
  3. PREMARIN [Concomitant]
  4. NORVASC [Concomitant]
  5. SYNTHROID [Concomitant]
  6. COUMADIN [Concomitant]
  7. FOLIC ACID [Concomitant]
  8. CALCIUM GLUCONATE [Concomitant]
  9. PERCOCET [Concomitant]
  10. PERCOCET [Concomitant]
     Dosage: AS NEEDED
  11. XANAX [Concomitant]
     Dosage: AS NEEDED
  12. ELAVIL [Concomitant]
  13. BEXTRA [Concomitant]
  14. METHOTREXATE [Concomitant]

REACTIONS (5)
  - CELLULITIS GANGRENOUS [None]
  - FINGER AMPUTATION [None]
  - METHICILLIN-RESISTANT STAPHYLOCOCCAL AUREUS TEST [None]
  - PNEUMONIA [None]
  - RESPIRATORY FAILURE [None]
